FAERS Safety Report 13447926 (Version 3)
Quarter: 2022Q4

REPORT INFORMATION
  Report Type: Spontaneous
  Country: US (occurrence: US)
  Receive Date: 20170417
  Receipt Date: 20221110
  Transmission Date: 20230113
  Serious: Yes (Life-Threatening, Hospitalization, Other)
  Sender: FDA-Public Use
  Company Number: US-JNJFOC-20170416037

PATIENT
  Age: 59 Year
  Sex: Male

DRUGS (1)
  1. LEVAQUIN [Suspect]
     Active Substance: LEVOFLOXACIN
     Indication: Pneumonia
     Route: 048

REACTIONS (2)
  - Aortic aneurysm [Recovering/Resolving]
  - Aortic dissection [Unknown]

NARRATIVE: CASE EVENT DATE: 20110208
